FAERS Safety Report 15492086 (Version 1)
Quarter: 2018Q4

REPORT INFORMATION
  Report Type: Report from Study
  Country: JP (occurrence: JP)
  Receive Date: 20181012
  Receipt Date: 20181012
  Transmission Date: 20190205
  Serious: Yes (Other)
  Sender: FDA-Public Use
  Company Number: JP-ACTELION-A-CH2018-177943

PATIENT
  Age: 74 Year
  Sex: Female

DRUGS (9)
  1. OPSUMIT [Suspect]
     Active Substance: MACITENTAN
     Indication: PULMONARY ARTERIAL HYPERTENSION
     Dosage: UNK
     Route: 048
     Dates: start: 20180307, end: 20180307
  2. FUROSEMIDE. [Concomitant]
     Active Substance: FUROSEMIDE
  3. SAMSCA [Concomitant]
     Active Substance: TOLVAPTAN
  4. OPSUMIT [Suspect]
     Active Substance: MACITENTAN
     Dosage: 10 MG, OD
     Route: 048
     Dates: start: 20180314, end: 20180426
  5. MARZULENE-S [Concomitant]
     Active Substance: SODIUM GUALENATE
  6. OPSUMIT [Suspect]
     Active Substance: MACITENTAN
     Dosage: UNK
     Route: 048
     Dates: start: 20170308, end: 20180313
  7. FEBURIC [Concomitant]
     Active Substance: FEBUXOSTAT
  8. JAKAVI [Concomitant]
     Active Substance: RUXOLITINIB
  9. LUNESTA [Concomitant]
     Active Substance: ESZOPICLONE

REACTIONS (5)
  - Malaise [Recovered/Resolved]
  - Transfusion [Unknown]
  - Anaemia [Recovered/Resolved]
  - Concomitant disease progression [Recovered/Resolved]
  - Platelet count decreased [Not Recovered/Not Resolved]

NARRATIVE: CASE EVENT DATE: 20180426
